FAERS Safety Report 6403160-6 (Version None)
Quarter: 2009Q4

REPORT INFORMATION
  Report Type: 
  Country: None (occurrence: None)
  Receive Date: 20091016
  Receipt Date: 20091012
  Transmission Date: 20100525
  Serious: Yes (Life-Threatening)
  Sender: FDA-Public Use
  Company Number: FR-ASTRAZENECA-2009SE19952

PATIENT
  Age: 2855 Day
  Sex: Female
  Weight: 16 kg

DRUGS (7)
  1. DIPRIVAN [Suspect]
     Indication: ANAESTHESIA
     Route: 042
     Dates: start: 20090925, end: 20090925
  2. XYLOCAINE [Suspect]
     Indication: EPIDURAL ANAESTHESIA
     Route: 008
     Dates: start: 20090925, end: 20090925
  3. CEFAMANDOLE PANPHARMA [Suspect]
     Indication: PROPHYLAXIS
     Route: 042
     Dates: start: 20090925, end: 20090925
  4. NAROPIN [Concomitant]
     Dates: start: 20090925, end: 20090925
  5. SUFENTANIL CITRATE [Concomitant]
     Indication: ANAESTHESIA
     Route: 042
     Dates: start: 20090925, end: 20090925
  6. BETADINE [Concomitant]
     Dates: start: 20090925, end: 20090925
  7. SEVORANE [Concomitant]
     Indication: ANAESTHESIA
     Dates: start: 20090925, end: 20090925

REACTIONS (1)
  - ANAPHYLACTIC SHOCK [None]
